FAERS Safety Report 6091081-0 (Version None)
Quarter: 2009Q1

REPORT INFORMATION
  Report Type: 
  Country: None (occurrence: None)
  Receive Date: 20090225
  Receipt Date: 20090214
  Transmission Date: 20090719
  Serious: Yes (Other)
  Sender: FDA-Public Use
  Company Number: US-PFIZER INC-2004221166US

PATIENT
  Sex: Female
  Weight: 101.59 kg

DRUGS (9)
  1. CELEBREX [Suspect]
     Indication: MUSCLE INJURY
     Dosage: 100 MG, 1X/DAY
     Route: 048
     Dates: start: 20040226, end: 20040229
  2. CELEBREX [Suspect]
     Indication: PAIN
  3. CELEBREX [Suspect]
     Indication: TENDONITIS
  4. ALL OTHER NON-THERAPEUTIC PRODUCTS [Suspect]
  5. ANTIHYPERTENSIVES [Concomitant]
  6. PHENOBARBITAL TAB [Concomitant]
     Dosage: UNK
     Route: 048
  7. PHENOBARBITAL TAB [Concomitant]
     Route: 048
  8. BENICAR [Concomitant]
     Route: 048
  9. LEVOXYL [Concomitant]
     Route: 048

REACTIONS (22)
  - ABDOMINAL PAIN UPPER [None]
  - AGEUSIA [None]
  - ANGIOPATHY [None]
  - BALANCE DISORDER [None]
  - DANDRUFF [None]
  - DRY MOUTH [None]
  - FOOD ALLERGY [None]
  - HEAD DISCOMFORT [None]
  - HYPOAESTHESIA ORAL [None]
  - LIP DISORDER [None]
  - LIP PAIN [None]
  - LIP SWELLING [None]
  - MOUTH INJURY [None]
  - MUSCLE INJURY [None]
  - NAUSEA [None]
  - NERVE INJURY [None]
  - ORAL DISCOMFORT [None]
  - PRURITUS GENERALISED [None]
  - SKIN EXFOLIATION [None]
  - SWELLING [None]
  - TONGUE DISORDER [None]
  - URTICARIA [None]
